FAERS Safety Report 19447996 (Version 1)
Quarter: 2021Q2

REPORT INFORMATION
  Report Type: Spontaneous
  Country: US (occurrence: US)
  Receive Date: 20210621
  Receipt Date: 20210621
  Transmission Date: 20210717
  Serious: No
  Sender: FDA-Public Use
  Company Number: None

PATIENT
  Age: 57 Year
  Sex: Male
  Weight: 112 kg

DRUGS (1)
  1. PIOGLITAZONE (PIOGLITAZONE HCL 30MG TAB) [Suspect]
     Active Substance: PIOGLITAZONE HYDROCHLORIDE
     Indication: CARDIAC FAILURE CONGESTIVE
     Route: 048
     Dates: start: 20210304, end: 20210331

REACTIONS (2)
  - Cardiac failure [None]
  - Oedema [None]

NARRATIVE: CASE EVENT DATE: 20210330
